FAERS Safety Report 10373657 (Version 1)
Quarter: 2014Q1

REPORT INFORMATION
  Report Type: Spontaneous
  Country: US (occurrence: None)
  Receive Date: 20140306
  Receipt Date: 20140306
  Transmission Date: 20141002
  Serious: Yes (Hospitalization)
  Sender: FDA-Public Use
  Company Number: 163-21880-13040203

PATIENT
  Age: 54 Year
  Sex: Female
  Weight: 60.51 kg

DRUGS (9)
  1. REVLIMID (LENALIDOMIDE) (10 MILLIGRAM, CAPSULES) [Suspect]
     Indication: PLASMA CELL MYELOMA
     Route: 048
     Dates: start: 20130205
  2. ACYCLOVIR (TABLETS) [Concomitant]
  3. BACTRIM DS [Concomitant]
  4. ONDANSETRON HCL [Concomitant]
  5. MULTIVITAMINS [Concomitant]
  6. CIPROFLOXACIN HCL [Concomitant]
  7. WELLBUTRIN (BUPROPION HYDROCHLORIDE) [Concomitant]
  8. SEROQUEL (QUETIAPINE FUMARATE) [Concomitant]
  9. IBUPROFEN [Concomitant]

REACTIONS (10)
  - Fatigue [None]
  - Drug dose omission [None]
  - Abdominal distension [None]
  - Skin discolouration [None]
  - Fungal infection [None]
  - Constipation [None]
  - Pyrexia [None]
  - Hypoaesthesia [None]
  - Diarrhoea [None]
  - Abdominal pain lower [None]
